FAERS Safety Report 5140439-2 (Version None)
Quarter: 2006Q4

REPORT INFORMATION
  Report Type: 
  Country: None (occurrence: None)
  Receive Date: 20061026
  Receipt Date: 20061026
  Transmission Date: 20070319
  Serious: Yes (Disabling, Other)
  Sender: FDA-Public Use
  Company Number: None

PATIENT
  Age: 43 Year
  Sex: Female
  Weight: 103.8737 kg

DRUGS (2)
  1. CYMBALTA [Suspect]
     Indication: DEPRESSION
     Dosage: 30MG  ONCE A DAY  PO
     Route: 048
     Dates: start: 20060601, end: 20061024
  2. CYMBALTA [Suspect]
     Indication: PAIN
     Dosage: 30MG  ONCE A DAY  PO
     Route: 048
     Dates: start: 20060601, end: 20061024

REACTIONS (5)
  - CRYING [None]
  - DIARRHOEA [None]
  - HALLUCINATION [None]
  - INSOMNIA [None]
  - SUICIDAL IDEATION [None]
